FAERS Safety Report 24361847 (Version 1)
Quarter: 2024Q3

REPORT INFORMATION
  Report Type: Spontaneous
  Country: US (occurrence: US)
  Receive Date: 20240925
  Receipt Date: 20240925
  Transmission Date: 20241017
  Serious: Yes (Other)
  Sender: SANOFI AVENTIS
  Company Number: US-SA-2024SA275372

PATIENT
  Age: 78 Year
  Sex: Female

DRUGS (9)
  1. DUPIXENT [Suspect]
     Active Substance: DUPILUMAB
     Indication: Dermatitis atopic
     Dosage: 300 MG, QOW
     Route: 058
     Dates: start: 202401
  2. TACROLIMUS [Concomitant]
     Active Substance: TACROLIMUS
  3. COMBIGAN [Concomitant]
     Active Substance: BRIMONIDINE TARTRATE\TIMOLOL MALEATE
  4. EXEMESTANE [Concomitant]
     Active Substance: EXEMESTANE
  5. FISH OIL [Concomitant]
     Active Substance: FISH OIL
  6. VITAMINS [Concomitant]
     Active Substance: VITAMINS
     Dosage: UNK, QD
  7. NASONEX [Concomitant]
     Active Substance: MOMETASONE FUROATE
  8. TYLENOL [Concomitant]
     Active Substance: ACETAMINOPHEN
  9. ZYRTEC [Concomitant]
     Active Substance: CETIRIZINE HYDROCHLORIDE

REACTIONS (2)
  - Diabetes mellitus [Unknown]
  - Macular degeneration [Unknown]

NARRATIVE: CASE EVENT DATE: 20240101
